FAERS Safety Report 9522061 (Version 6)
Quarter: 2014Q4

REPORT INFORMATION
  Report Type: Spontaneous
  Country: US (occurrence: US)
  Receive Date: 20130913
  Receipt Date: 20141216
  Transmission Date: 20150529
  Serious: Yes (Hospitalization, Other)
  Sender: FDA-Public Use
  Company Number: US-BAYER-2013-110235

PATIENT
  Age: 28 Year
  Sex: Female
  Weight: 68.27 kg

DRUGS (5)
  1. IBUPROFEN. [Concomitant]
     Active Substance: IBUPROFEN
  2. PROAIR HFA [Concomitant]
     Active Substance: ALBUTEROL SULFATE
     Indication: ASTHMA
     Dosage: UNK
     Dates: start: 1996, end: 2014
  3. MIRENA [Suspect]
     Active Substance: LEVONORGESTREL
     Indication: CONTRACEPTION
     Dosage: 20 MCG/24HR, CONT
     Route: 015
     Dates: start: 20121126, end: 20130209
  4. MIRENA [Suspect]
     Active Substance: LEVONORGESTREL
     Indication: MENORRHAGIA
  5. METRONIDAZOLE. [Concomitant]
     Active Substance: METRONIDAZOLE
     Dosage: 500 MG, BID

REACTIONS (20)
  - Uterine leiomyoma [None]
  - Injury [None]
  - Device dislocation [None]
  - Genital haemorrhage [None]
  - Headache [None]
  - Crying [None]
  - Device dislocation [None]
  - Back pain [None]
  - Anxiety [None]
  - Agitation [None]
  - Fear [None]
  - Dyspareunia [None]
  - Device difficult to use [None]
  - Depression [None]
  - Emotional distress [None]
  - Abdominal pain upper [None]
  - Depressed mood [None]
  - Confusional state [None]
  - Nervousness [None]
  - Medical device pain [None]

NARRATIVE: CASE EVENT DATE: 201211
